FAERS Safety Report 9109617 (Version 1)
Quarter: 2013Q1

REPORT INFORMATION
  Report Type: Spontaneous
  Country: US (occurrence: US)
  Receive Date: 20130222
  Receipt Date: 20130222
  Transmission Date: 20140127
  Serious: Yes (Hospitalization)
  Sender: FDA-Public Use
  Company Number: US-TEVA-354240USA

PATIENT
  Sex: Female

DRUGS (1)
  1. TREANDA [Suspect]

REACTIONS (1)
  - Rash [Unknown]
